FAERS Safety Report 12906141 (Version 1)
Quarter: 2016Q4

REPORT INFORMATION
  Report Type: Spontaneous
  Country: US (occurrence: US)
  Receive Date: 20161101
  Receipt Date: 20161101
  Transmission Date: 20170207
  Serious: No
  Sender: FDA-Public Use
  Company Number: None

PATIENT
  Sex: Male

DRUGS (1)
  1. ADVATE [Suspect]
     Active Substance: ANTIHEMOPHILIC FACTOR, HUMAN RECOMBINANT
     Indication: FACTOR VIII DEFICIENCY
     Dosage: 3000U
     Route: 042
     Dates: start: 20160819, end: 20161020

REACTIONS (2)
  - Abdominal pain upper [None]
  - Abnormal behaviour [None]

NARRATIVE: CASE EVENT DATE: 20161020
